FAERS Safety Report 10417668 (Version 1)
Quarter: 2014Q3

REPORT INFORMATION
  Report Type: Spontaneous
  Country: US (occurrence: None)
  Receive Date: 20140828
  Receipt Date: 20140828
  Transmission Date: 20150326
  Serious: Yes (Life-Threatening, Hospitalization)
  Sender: FDA-Public Use
  Company Number: None

PATIENT
  Age: 51 Year
  Sex: Female

DRUGS (12)
  1. CLOBEX [Concomitant]
     Active Substance: CLOBETASOL PROPIONATE
  2. SUBCUTANEOUS [Concomitant]
  3. MISOPROSTOL. [Concomitant]
     Active Substance: MISOPROSTOL
  4. STELARA [Suspect]
     Active Substance: USTEKINUMAB
     Indication: PSORIASIS
     Route: 058
     Dates: start: 20140403, end: 20140812
  5. CLOBETASOL 0.05 % [Concomitant]
  6. HYLATOPIC PLUS [Concomitant]
  7. MOBIC [Concomitant]
     Active Substance: MELOXICAM
  8. XANAX [Concomitant]
     Active Substance: ALPRAZOLAM
  9. STELARA [Concomitant]
     Active Substance: USTEKINUMAB
  10. TRAMADOL [Concomitant]
     Active Substance: TRAMADOL
  11. CELEXA [Concomitant]
     Active Substance: CITALOPRAM HYDROBROMIDE
  12. FLEXERIL [Concomitant]
     Active Substance: CYCLOBENZAPRINE HYDROCHLORIDE

REACTIONS (2)
  - Posterior reversible encephalopathy syndrome [None]
  - Ischaemia [None]

NARRATIVE: CASE EVENT DATE: 20140813
